FAERS Safety Report 5195299-0 (Version None)
Quarter: 2006Q4

REPORT INFORMATION
  Report Type: 
  Country: None (occurrence: None)
  Receive Date: 20061229
  Receipt Date: 20061208
  Transmission Date: 20070319
  Serious: Yes (Other)
  Sender: FDA-Public Use
  Company Number: JP-PFIZER INC-2006153298

PATIENT
  Sex: Female

DRUGS (4)
  1. EPIRUBICIN HYDROCHLORIDE [Suspect]
     Indication: BREAST CANCER
     Dosage: DAILY DOSE:100MG/M*2
     Route: 042
     Dates: start: 20061001, end: 20061001
  2. DECADRON [Concomitant]
     Route: 042
  3. FLUOROURACIL [Concomitant]
     Route: 042
  4. CYCLOPHOSPHAMIDE [Concomitant]
     Route: 042

REACTIONS (1)
  - VASCULITIS [None]
